FAERS Safety Report 15249318 (Version 1)
Quarter: 2018Q3

REPORT INFORMATION
  Report Type: Spontaneous
  Country: US (occurrence: US)
  Receive Date: 20180807
  Receipt Date: 20180807
  Transmission Date: 20181010
  Serious: No
  Sender: FDA-Public Use
  Company Number: US-PERRIGO-17US028147

PATIENT
  Age: 36 Year
  Sex: Male
  Weight: 104.31 kg

DRUGS (1)
  1. LORATADINE. [Suspect]
     Active Substance: LORATADINE
     Indication: SEASONAL ALLERGY
     Dosage: 10 MG, QD
     Route: 048
     Dates: start: 20171102, end: 20171104

REACTIONS (2)
  - Rash generalised [Not Recovered/Not Resolved]
  - Hypersensitivity [Not Recovered/Not Resolved]

NARRATIVE: CASE EVENT DATE: 20171103
